FAERS Safety Report 9607843 (Version 1)
Quarter: 2013Q4

REPORT INFORMATION
  Report Type: Spontaneous
  Country: US (occurrence: None)
  Receive Date: 20131008
  Receipt Date: 20131008
  Transmission Date: 20140711
  Serious: No
  Sender: FDA-Public Use
  Company Number: None

PATIENT
  Age: 61 Year
  Sex: Female
  Weight: 59.42 kg

DRUGS (5)
  1. SERTRALINE [Suspect]
     Indication: DEPRESSION
     Dosage: 150 MG ONCE DAILY TAKEN BY MOUTH
     Route: 048
     Dates: start: 20130601, end: 20130615
  2. SERTRALINE [Suspect]
     Indication: ANXIETY
     Dosage: 150 MG ONCE DAILY TAKEN BY MOUTH
     Route: 048
     Dates: start: 20130601, end: 20130615
  3. SERTRALINE [Suspect]
     Indication: POST-TRAUMATIC STRESS DISORDER
     Dosage: 150 MG ONCE DAILY TAKEN BY MOUTH
     Route: 048
     Dates: start: 20130601, end: 20130615
  4. SERTRALINE [Suspect]
     Indication: HEADACHE
     Dosage: 150 MG ONCE DAILY TAKEN BY MOUTH
     Route: 048
     Dates: start: 20130601, end: 20130615
  5. LEVOTHYROXINE [Suspect]
     Indication: BLOOD THYROID STIMULATING HORMONE INCREASED
     Dosage: 1 PILL ONCE DAILY TAKEN BY MOUTH
     Route: 048

REACTIONS (2)
  - Headache [None]
  - Product substitution issue [None]
